FAERS Safety Report 19106761 (Version 1)
Quarter: 2021Q2

REPORT INFORMATION
  Report Type: Spontaneous
  Country: US (occurrence: US)
  Receive Date: 20210407
  Receipt Date: 20210407
  Transmission Date: 20210717
  Serious: No
  Sender: FDA-Public Use
  Company Number: None

PATIENT
  Age: 11 Year
  Sex: Female
  Weight: 25.65 kg

DRUGS (3)
  1. GUANFACINE. [Suspect]
     Active Substance: GUANFACINE
     Indication: ATTENTION DEFICIT HYPERACTIVITY DISORDER
     Dates: start: 20210327, end: 20210404
  2. MIRTAZAPINE. [Concomitant]
     Active Substance: MIRTAZAPINE
  3. DAYTRANA [Concomitant]
     Active Substance: METHYLPHENIDATE

REACTIONS (4)
  - Headache [None]
  - Recalled product administered [None]
  - Blood pressure systolic decreased [None]
  - Insomnia [None]

NARRATIVE: CASE EVENT DATE: 20210406
